FAERS Safety Report 11114753 (Version 1)
Quarter: 2015Q2

REPORT INFORMATION
  Report Type: Spontaneous
  Country: IT (occurrence: None)
  Receive Date: 20150513
  Receipt Date: 20150513
  Transmission Date: 20150821
  Serious: Yes (Other)
  Sender: FDA-Public Use
  Company Number: IT-2015VAL000291

PATIENT
  Age: 34 Year
  Sex: Male

DRUGS (2)
  1. CARBAMAZEPINE (CARBAMAZEPINE) [Suspect]
     Active Substance: CARBAMAZEPINE
     Indication: EPILEPSY
  2. PHENOBARBITAL (PHENOBARBITAL) [Suspect]
     Active Substance: PHENOBARBITAL
     Indication: EPILEPSY

REACTIONS (1)
  - Immune thrombocytopenic purpura [None]

NARRATIVE: CASE EVENT DATE: 199901
